FAERS Safety Report 8543814-9 (Version None)
Quarter: 2012Q3

REPORT INFORMATION
  Report Type: 
  Country: None (occurrence: None)
  Receive Date: 20120727
  Receipt Date: 20120718
  Transmission Date: 20120928
  Serious: Yes (Other)
  Sender: FDA-Public Use
  Company Number: US-JNJFOC-20120709938

PATIENT
  Age: 53 Year
  Sex: Male

DRUGS (4)
  1. NUCYNTA ER [Suspect]
     Indication: PAIN
     Dosage: 100 MG TWICE A DAY
     Route: 048
     Dates: start: 20120716, end: 20120718
  2. SOMA [Suspect]
     Indication: HYPOTONIA
     Dosage: 350 MG AT BEDTIME
     Route: 048
     Dates: start: 20120716, end: 20120718
  3. ANAPROX [Suspect]
     Indication: INFLAMMATION
     Dosage: 500 MG TWICE A DAY
     Route: 048
     Dates: start: 20120716, end: 20120718
  4. ACETAMINOPHEN [Suspect]
     Indication: PAIN
     Dosage: 500 MG 4 TIMES A DAY
     Route: 048
     Dates: start: 20120716

REACTIONS (4)
  - APHASIA [None]
  - MUSCLE SPASMS [None]
  - SWOLLEN TONGUE [None]
  - DYSPHAGIA [None]
